FAERS Safety Report 12369383 (Version 1)
Quarter: 2016Q2

REPORT INFORMATION
  Report Type: Spontaneous
  Country: US (occurrence: US)
  Receive Date: 20160513
  Receipt Date: 20160513
  Transmission Date: 20160815
  Serious: No
  Sender: FDA-Public Use
  Company Number: US-PERRIGO-15US007794

PATIENT
  Sex: Male
  Weight: 83.9 kg

DRUGS (3)
  1. OTHER COLD PREPARATIONS [Suspect]
     Active Substance: UNSPECIFIED INGREDIENT
     Indication: NASOPHARYNGITIS
     Dosage: UNK
     Route: 048
     Dates: start: 201507
  2. Q-TUSSIN [Suspect]
     Active Substance: GUAIFENESIN
     Indication: NASOPHARYNGITIS
     Dosage: UNK
     Route: 048
     Dates: start: 201507
  3. FAMOTIDINE. [Suspect]
     Active Substance: FAMOTIDINE
     Indication: DYSPEPSIA
     Dosage: 10 MG, PRN
     Route: 048
     Dates: start: 20150701

REACTIONS (1)
  - Drug screen positive [Recovered/Resolved]

NARRATIVE: CASE EVENT DATE: 2015
